FAERS Safety Report 9003512 (Version 2)
Quarter: 2013Q1

REPORT INFORMATION
  Report Type: Spontaneous
  Country: FI (occurrence: FI)
  Receive Date: 20130108
  Receipt Date: 20130122
  Transmission Date: 20140127
  Serious: Yes (Other)
  Sender: FDA-Public Use
  Company Number: FI-PFIZER INC-2013008298

PATIENT
  Age: 48 Year
  Sex: Male

DRUGS (2)
  1. LYRICA [Suspect]
     Indication: NEURALGIA
     Dosage: 25MG IN THE MORNINGS AND 25-50MG IN THE EVENINGS
     Dates: start: 20101228, end: 20111221
  2. LYRICA [Suspect]
     Indication: HYPOAESTHESIA
     Dosage: 75MG IN THE MORNINGS AND 225MG IN THE EVENINGS
     Dates: start: 20121101, end: 20121210

REACTIONS (1)
  - Mouth haemorrhage [Unknown]
